FAERS Safety Report 6150469-X (Version None)
Quarter: 2009Q2

REPORT INFORMATION
  Report Type: 
  Country: None (occurrence: None)
  Receive Date: 20090409
  Receipt Date: 20090327
  Transmission Date: 20091009
  Serious: Yes (Hospitalization)
  Sender: FDA-Public Use
  Company Number: FR-JNJFOC-20090401860

PATIENT
  Sex: Female

DRUGS (6)
  1. ZALDIAR [Suspect]
     Indication: ARTHRALGIA
     Route: 048
  2. FIXICAL [Concomitant]
  3. ACTONEL [Concomitant]
  4. GUTRON [Concomitant]
  5. KARDEGIC [Concomitant]
  6. LIPANTHYL [Concomitant]

REACTIONS (5)
  - CONVULSION [None]
  - HYPONATRAEMIA [None]
  - NAUSEA [None]
  - SOMNOLENCE [None]
  - VOMITING [None]
